FAERS Safety Report 7621427-0 (Version None)
Quarter: 2011Q3

REPORT INFORMATION
  Report Type: 
  Country: None (occurrence: None)
  Receive Date: 20110719
  Receipt Date: 20110714
  Transmission Date: 20111222
  Serious: Yes (Hospitalization)
  Sender: FDA-Public Use
  Company Number: CA-B.I. PHARMACEUTICALS,INC./RIDGEFIELD-2011-CN-00939CN

PATIENT
  Age: 80 Year
  Sex: Male

DRUGS (2)
  1. FLOMAX [Suspect]
     Dosage: 0.4 MG
     Route: 048
  2. ARICEPT [Concomitant]
     Dosage: 10 MG

REACTIONS (1)
  - ELECTROCARDIOGRAM QT PROLONGED [None]
